FAERS Safety Report 24774033 (Version 2)
Quarter: 2025Q2

REPORT INFORMATION
  Report Type: Spontaneous
  Country: US (occurrence: US)
  Receive Date: 20241225
  Receipt Date: 20250409
  Transmission Date: 20250716
  Serious: No
  Sender: SANOFI AVENTIS
  Company Number: US-SA-2024SA378903

PATIENT
  Age: 74 Year
  Sex: Female

DRUGS (20)
  1. REZUROCK [Suspect]
     Active Substance: BELUMOSUDIL
     Indication: Chronic graft versus host disease
     Dosage: 200 MG, QD
     Route: 048
     Dates: start: 20230309
  2. DEXAMETHASONE [Concomitant]
     Active Substance: DEXAMETHASONE
  3. ASPIRIN [Concomitant]
     Active Substance: ASPIRIN
  4. ACYCLOVIR [Concomitant]
     Active Substance: ACYCLOVIR
  5. CLOPIDOGREL [Concomitant]
     Active Substance: CLOPIDOGREL BISULFATE
  6. ATORVASTATIN [Concomitant]
     Active Substance: ATORVASTATIN
  7. CALCIUM\VITAMIN D [Concomitant]
     Active Substance: CALCIUM\VITAMIN D
  8. CULTURELLE [Concomitant]
     Active Substance: LACTOBACILLUS RHAMNOSUS
  9. MELATONIN [Concomitant]
     Active Substance: MELATONIN
  10. DEMANNOSE [Concomitant]
     Active Substance: DEMANNOSE
  11. FISH OIL [Concomitant]
     Active Substance: FISH OIL
  12. FENOFIBRATE [Concomitant]
     Active Substance: FENOFIBRATE
  13. POTASSIUM [Concomitant]
     Active Substance: POTASSIUM
  14. INSULIN GLARGINE [Concomitant]
     Active Substance: INSULIN GLARGINE
  15. LISINOPRIL [Concomitant]
     Active Substance: LISINOPRIL
  16. LORATADINE [Concomitant]
     Active Substance: LORATADINE
  17. LOVAZA [Concomitant]
     Active Substance: OMEGA-3-ACID ETHYL ESTERS
  18. VITAMINS NOS [Concomitant]
     Active Substance: VITAMINS
  19. PENICILLIN [Concomitant]
     Active Substance: PENICILLIN
  20. PREDNISONE [Concomitant]
     Active Substance: PREDNISONE

REACTIONS (3)
  - Pain in extremity [Unknown]
  - Nasopharyngitis [Not Recovered/Not Resolved]
  - Arthralgia [Unknown]

NARRATIVE: CASE EVENT DATE: 20241214
